FAERS Safety Report 4812003-3 (Version None)
Quarter: 2005Q4

REPORT INFORMATION
  Report Type: 
  Country: None (occurrence: None)
  Receive Date: 20051027
  Receipt Date: 20051027
  Transmission Date: 20060501
  Serious: Yes (Hospitalization)
  Sender: FDA-Public Use
  Company Number: None

PATIENT
  Sex: Female
  Weight: 72 kg

DRUGS (6)
  1. ERLOTINIB [Suspect]
     Indication: OVARIAN CANCER
     Dosage: 150MG/PER DAY BY MOUTH
     Route: 048
     Dates: start: 20050922, end: 20051007
  2. BEVACIZUMAB [Concomitant]
  3. COUMADIN [Concomitant]
  4. PAXIL [Concomitant]
  5. DOXYCYCLINE [Concomitant]
  6. ^HORMONE^ [Concomitant]

REACTIONS (13)
  - ASTHENIA [None]
  - COAGULOPATHY [None]
  - CULTURE URINE POSITIVE [None]
  - DEHYDRATION [None]
  - DEPRESSION [None]
  - DIZZINESS [None]
  - LACTOBACILLUS INFECTION [None]
  - LIVER FUNCTION TEST ABNORMAL [None]
  - NAUSEA [None]
  - ORAL INTAKE REDUCED [None]
  - POST PROCEDURAL DIARRHOEA [None]
  - RASH [None]
  - VOMITING [None]
